FAERS Safety Report 4767515-8 (Version None)
Quarter: 2005Q3

REPORT INFORMATION
  Report Type: 
  Country: None (occurrence: None)
  Receive Date: 20050912
  Receipt Date: 20050826
  Transmission Date: 20060218
  Serious: Yes (Other)
  Sender: FDA-Public Use
  Company Number: 2005121059

PATIENT
  Sex: Male

DRUGS (1)
  1. BENGAY GREASELESS (MENTHOL, METHYL SALICYLATE) [Suspect]
     Indication: BACK PAIN
     Dosage: ONCE   TOPICAL
     Route: 061
     Dates: start: 20021206, end: 20021206

REACTIONS (5)
  - BURNS THIRD DEGREE [None]
  - CHEMICAL BURN OF SKIN [None]
  - PAIN [None]
  - POLYTRAUMATISM [None]
  - SENSORY DISTURBANCE [None]
